FAERS Safety Report 5284336-0 (Version None)
Quarter: 2007Q2

REPORT INFORMATION
  Report Type: 
  Country: None (occurrence: None)
  Receive Date: 20070403
  Receipt Date: 20070322
  Transmission Date: 20071010
  Serious: Yes (Hospitalization, Other)
  Sender: FDA-Public Use
  Company Number: BE-ELI_LILLY_AND_COMPANY-BE200703004980

PATIENT
  Age: 15 Year
  Sex: Female

DRUGS (5)
  1. OLANZAPINE [Suspect]
     Indication: DELUSIONAL DISORDER, PERSECUTORY TYPE
     Dosage: 5 MG, UNK
     Route: 030
     Dates: start: 20070305, end: 20070309
  2. RISPERDAL [Concomitant]
  3. INSULIN [Concomitant]
     Indication: DIABETES MELLITUS INSULIN-DEPENDENT
  4. OLANZAPINE [Suspect]
     Dosage: 10 MG, UNK
     Route: 048
     Dates: start: 20070310
  5. OLANZAPINE [Suspect]
     Dosage: 5 MG, UNK
     Dates: start: 20070322

REACTIONS (4)
  - AGITATION [None]
  - DELIRIUM [None]
  - HALLUCINATION [None]
  - SYSTEMIC LUPUS ERYTHEMATOSUS [None]
